FAERS Safety Report 6382652-2 (Version None)
Quarter: 2009Q3

REPORT INFORMATION
  Report Type: 
  Country: None (occurrence: None)
  Receive Date: 20090924
  Receipt Date: 20090122
  Transmission Date: 20100115
  Serious: Yes (Hospitalization, Disabling)
  Sender: FDA-Public Use
  Company Number: WAES 0901USA03290

PATIENT
  Age: 55 Year
  Sex: Female

DRUGS (2)
  1. VYTORIN [Suspect]
     Indication: HYPERLIPIDAEMIA
     Dosage: 10-80 MG/DAILY/PO
     Route: 048
  2. LOPID [Concomitant]

REACTIONS (2)
  - HEPATITIS ACUTE [None]
  - RHABDOMYOLYSIS [None]
